FAERS Safety Report 19586205 (Version 1)
Quarter: 2021Q3

REPORT INFORMATION
  Report Type: Other
  Country: CN (occurrence: CN)
  Receive Date: 20210721
  Receipt Date: 20210721
  Transmission Date: 20211014
  Serious: Yes (Other)
  Sender: FDA-Public Use
  Company Number: CN-ROCHE-2872577

PATIENT

DRUGS (30)
  1. METHOTREXATE. [Suspect]
     Active Substance: METHOTREXATE
     Indication: BURKITT^S LYMPHOMA
     Dosage: GIVEN ON DAY 1, INTRATHECAL INJECTION ON DAY1,8
     Route: 037
  2. PREDNISONE. [Suspect]
     Active Substance: PREDNISONE
     Dosage: ON DAY 1?7, INTRATHECAL INJECTION, D1,8
     Route: 037
  3. CYTARABINE. [Suspect]
     Active Substance: CYTARABINE
     Dosage: GIVEN ON DAY4, INTRATHECAL INJECTION ON DAY1,8
     Route: 037
  4. IFOSFAMIDE. [Suspect]
     Active Substance: IFOSFAMIDE
     Dosage: GIVEN ON DAY 1?5, INTRATHECAL INJECTION ON DAY1,8
     Route: 037
  5. RITUXIMAB. [Suspect]
     Active Substance: RITUXIMAB
     Dosage: ON D0 OF PROTOCOL AA
     Route: 042
  6. PREDNISONE. [Suspect]
     Active Substance: PREDNISONE
     Dosage: ON DAY 1?7, INTRATHECAL INJECTION, D1,8
     Route: 037
  7. PREDNISONE. [Suspect]
     Active Substance: PREDNISONE
     Dosage: ON DAY 1?7, INTRATHECAL INJECTION, D1,8
     Route: 037
  8. VINCRISTINE [Suspect]
     Active Substance: VINCRISTINE
     Indication: BURKITT^S LYMPHOMA
     Dosage: 3MG/M2 (MAX 5MG), GIVEN ON DAY 1, INTRATHECAL INJECTION ON DAY1,8
     Route: 037
  9. IFOSFAMIDE. [Suspect]
     Active Substance: IFOSFAMIDE
     Indication: BURKITT^S LYMPHOMA
     Dosage: GIVEN ON DAY 1?5, INTRATHECAL INJECTION ON DAY1,8
     Route: 037
  10. PREDNISONE. [Suspect]
     Active Substance: PREDNISONE
     Indication: BURKITT^S LYMPHOMA
     Dosage: ON DAY 1?7, INTRATHECAL INJECTION, D1
     Route: 037
  11. VINDESINE [Suspect]
     Active Substance: VINDESINE
     Indication: BURKITT^S LYMPHOMA
     Dosage: 3MG/M2 (MAX 5MG), GIVEN ON DAY 1, INTRATHECAL INJECTION ON DAY1,8
     Route: 037
  12. TACROLIMUS. [Suspect]
     Active Substance: TACROLIMUS
     Indication: BURKITT^S LYMPHOMA
     Dosage: 3MG/M2 (MAX 5MG), GIVEN ON DAY 1, INTRATHECAL INJECTION ON DAY1,8
     Route: 037
  13. RITUXIMAB. [Suspect]
     Active Substance: RITUXIMAB
     Dosage: ON D0 OF PROTOCOL AA
     Route: 042
  14. PREDNISONE. [Suspect]
     Active Substance: PREDNISONE
     Dosage: ON DAY 1?7, INTRATHECAL INJECTION, D1,8
     Route: 037
  15. DOXORUBICIN [Suspect]
     Active Substance: DOXORUBICIN
     Dosage: GIVEN ON DAY 2,3, INTRATHECAL INJECTION ON DAY1,8
     Route: 037
  16. IFOSFAMIDE. [Suspect]
     Active Substance: IFOSFAMIDE
     Dosage: GIVEN ON DAY 1?5, INTRATHECAL INJECTION ON DAY1,8
     Route: 037
  17. PREDNISONE. [Suspect]
     Active Substance: PREDNISONE
     Dosage: ON DAY 1?7, INTRATHECAL INJECTION, D1,8
     Route: 037
  18. CYTARABINE. [Suspect]
     Active Substance: CYTARABINE
     Dosage: GIVEN ON DAY4, INTRATHECAL INJECTION ON DAY1,8
     Route: 037
  19. ETOPOSIDE. [Suspect]
     Active Substance: ETOPOSIDE
     Indication: BURKITT^S LYMPHOMA
     Dosage: GIVEN ON DAY 3?5, INTRATHECAL INJECTION ON DAY1,8
     Route: 037
  20. ETOPOSIDE. [Suspect]
     Active Substance: ETOPOSIDE
     Dosage: GIVEN ON DAY 3?5, INTRATHECAL INJECTION ON DAY1,8
     Route: 037
  21. METHOTREXATE. [Suspect]
     Active Substance: METHOTREXATE
     Dosage: GIVEN ON DAY 1, INTRATHECAL INJECTION ON DAY1,8
     Route: 037
  22. METHOTREXATE. [Suspect]
     Active Substance: METHOTREXATE
     Dosage: GIVEN ON DAY 1, INTRATHECAL INJECTION ON DAY1,8
     Route: 037
  23. RITUXIMAB. [Suspect]
     Active Substance: RITUXIMAB
     Indication: BURKITT^S LYMPHOMA
     Dosage: ON D0 OF PROTOCOL BB
     Route: 041
  24. RITUXIMAB. [Suspect]
     Active Substance: RITUXIMAB
     Dosage: ON D0 OF PROTOCOL BB
     Route: 042
  25. CYCLOPHOSPHAMIDE. [Suspect]
     Active Substance: CYCLOPHOSPHAMIDE
     Indication: BURKITT^S LYMPHOMA
     Dosage: 1.5MG/M2(MAX 2MG), GIVEN ON DAY 1, INTRATHECAL INJECTION ON DAY1
     Route: 037
  26. CYTARABINE. [Suspect]
     Active Substance: CYTARABINE
     Indication: BURKITT^S LYMPHOMA
     Dosage: GIVEN ON DAY4, INTRATHECAL INJECTION ON DAY1,8
     Route: 037
  27. PREDNISONE. [Suspect]
     Active Substance: PREDNISONE
     Dosage: ON DAY 1?7, INTRATHECAL INJECTION, D1,8
     Route: 037
  28. DOXORUBICIN [Suspect]
     Active Substance: DOXORUBICIN
     Indication: BURKITT^S LYMPHOMA
     Dosage: GIVEN ON DAY 2,3, INTRATHECAL INJECTION ON DAY1,8
     Route: 037
  29. DOXORUBICIN [Suspect]
     Active Substance: DOXORUBICIN
     Dosage: GIVEN ON DAY 2,3, INTRATHECAL INJECTION ON DAY1,8
     Route: 037
  30. ETOPOSIDE. [Suspect]
     Active Substance: ETOPOSIDE
     Dosage: GIVEN ON DAY 3?5, INTRATHECAL INJECTION ON DAY1,8
     Route: 037

REACTIONS (4)
  - Agranulocytosis [Unknown]
  - Off label use [Unknown]
  - Anaemia [Recovered/Resolved]
  - Pyrexia [Unknown]
